FAERS Safety Report 8561401-3 (Version None)
Quarter: 2012Q3

REPORT INFORMATION
  Report Type: 
  Country: None (occurrence: None)
  Receive Date: 20120802
  Receipt Date: 20120730
  Transmission Date: 20120928
  Serious: Yes (Other)
  Sender: FDA-Public Use
  Company Number: US-GLAXOSMITHKLINE-A0982628A

PATIENT
  Sex: Female

DRUGS (3)
  1. UNKNOWN [Concomitant]
  2. SUMATRIPTAN SUCCINATE [Suspect]
     Indication: MIGRAINE
     Dosage: 6MG AS REQUIRED
     Route: 065
  3. ZONISAMIDE [Concomitant]

REACTIONS (5)
  - MIGRAINE [None]
  - GRAND MAL CONVULSION [None]
  - CONVULSION [None]
  - PRODUCT QUALITY ISSUE [None]
  - DRUG INEFFECTIVE [None]
